FAERS Safety Report 25035135 (Version 1)
Quarter: 2025Q1

REPORT INFORMATION
  Report Type: Spontaneous
  Country: ES (occurrence: ES)
  Receive Date: 20250304
  Receipt Date: 20250304
  Transmission Date: 20250409
  Serious: Yes (Death)
  Sender: ZYDUS PHARM
  Company Number: ES-CADILA HEALTHCARE LIMITED-ES-ZYDUS-119851

PATIENT

DRUGS (3)
  1. AMLODIPINE [Suspect]
     Active Substance: AMLODIPINE BESYLATE
     Indication: Squamous cell carcinoma
     Route: 065
  2. DEXAMETHASONE [Suspect]
     Active Substance: DEXAMETHASONE
     Indication: Squamous cell carcinoma
     Route: 065
  3. MANNITOL [Suspect]
     Active Substance: MANNITOL
     Indication: Squamous cell carcinoma
     Route: 065

REACTIONS (4)
  - Blood pressure fluctuation [Fatal]
  - Hyperglycaemia [Fatal]
  - Hyponatraemia [Fatal]
  - Lymphoedema [Fatal]
